FAERS Safety Report 8186617-X (Version None)
Quarter: 2012Q1

REPORT INFORMATION
  Report Type: 
  Country: None (occurrence: None)
  Receive Date: 20120305
  Receipt Date: 20120305
  Transmission Date: 20120608
  Serious: No
  Sender: FDA-Public Use
  Company Number: None

PATIENT
  Sex: Female
  Weight: 52.1637 kg

DRUGS (1)
  1. REVATIO [Suspect]
     Dosage: REVATIO 20MG ONE TID PO
     Route: 048
     Dates: start: 20111215, end: 20120215

REACTIONS (2)
  - VISUAL IMPAIRMENT [None]
  - OEDEMA PERIPHERAL [None]
